FAERS Safety Report 11343289 (Version 3)
Quarter: 2015Q4

REPORT INFORMATION
  Report Type: Spontaneous
  Country: US (occurrence: US)
  Receive Date: 20150806
  Receipt Date: 20151022
  Transmission Date: 20160304
  Serious: Yes (Other)
  Sender: FDA-Public Use
  Company Number: US-ROCHE-ITM201505IM016946

PATIENT
  Age: 73 Year
  Sex: Female
  Weight: 49.03 kg

DRUGS (5)
  1. ESBRIET [Suspect]
     Active Substance: PIRFENIDONE
     Dosage: 1 CAPSULE BY MOUTH THREE TIMES A DAY WITH FOOD.
     Route: 048
  2. ESBRIET [Suspect]
     Active Substance: PIRFENIDONE
     Dosage: 3 CAPSULES 3 TIMES A DAY
     Route: 048
     Dates: start: 20150716
  3. ALBUTEROL. [Concomitant]
     Active Substance: ALBUTEROL
     Route: 065
  4. ESBRIET [Suspect]
     Active Substance: PIRFENIDONE
     Route: 048
  5. ESBRIET [Suspect]
     Active Substance: PIRFENIDONE
     Indication: IDIOPATHIC PULMONARY FIBROSIS
     Route: 048
     Dates: start: 20150506

REACTIONS (7)
  - Oxygen saturation decreased [Not Recovered/Not Resolved]
  - Dyspnoea [Unknown]
  - Nausea [Not Recovered/Not Resolved]
  - Dyspepsia [Recovered/Resolved]
  - Fatigue [Unknown]
  - Pain [Not Recovered/Not Resolved]
  - Hypophagia [Unknown]

NARRATIVE: CASE EVENT DATE: 20150526
